FAERS Safety Report 21391312 (Version 2)
Quarter: 2022Q4

REPORT INFORMATION
  Report Type: Spontaneous
  Country: DE (occurrence: DE)
  Receive Date: 20220929
  Receipt Date: 20221013
  Transmission Date: 20230113
  Serious: Yes (Other)
  Sender: FDA-Public Use
  Company Number: DE-TEVA-2022-DE-2077249

PATIENT
  Age: 10 Year
  Sex: Female

DRUGS (4)
  1. FLUCONAZOLE [Suspect]
     Active Substance: FLUCONAZOLE
     Indication: Cutaneous leishmaniasis
     Dosage: 200 MILLIGRAM DAILY;
     Route: 050
  2. FLUCONAZOLE [Suspect]
     Active Substance: FLUCONAZOLE
     Indication: Leishmaniasis
     Dosage: 100 MILLIGRAM DAILY;
     Route: 050
  3. METHYLBENZETHONIUM CHLORIDE\PAROMOMYCIN [Suspect]
     Active Substance: METHYLBENZETHONIUM CHLORIDE\PAROMOMYCIN
     Indication: Cutaneous leishmaniasis
     Dosage: TWICE DAILY
     Route: 061
  4. METHYLBENZETHONIUM CHLORIDE\PAROMOMYCIN [Suspect]
     Active Substance: METHYLBENZETHONIUM CHLORIDE\PAROMOMYCIN
     Indication: Leishmaniasis

REACTIONS (3)
  - Local reaction [Unknown]
  - Drug ineffective [Unknown]
  - Off label use [Unknown]
